FAERS Safety Report 18545505 (Version 2)
Quarter: 2020Q4

REPORT INFORMATION
  Report Type: Spontaneous
  Country: BR (occurrence: BR)
  Receive Date: 20201125
  Receipt Date: 20201216
  Transmission Date: 20210114
  Serious: Yes (Other)
  Sender: FDA-Public Use
  Company Number: NVSC2020BR313597

PATIENT
  Sex: Female
  Weight: 65 kg

DRUGS (3)
  1. ESTRADOT [Suspect]
     Active Substance: ESTRADIOL
     Dosage: 8 DF, QMO (8 ADHESIVE/MONTH, STRENGTH: 25 UG) IN THE SKIN
     Route: 065
  2. ESTELLE [Concomitant]
     Indication: HORMONE REPLACEMENT THERAPY
     Dosage: UNK, TIW
     Route: 067
  3. ESTRADOT [Suspect]
     Active Substance: ESTRADIOL
     Indication: HORMONE REPLACEMENT THERAPY
     Dosage: 8 DF, QMO (8 ADHESIVE/MONTH, STRENGTH: 50 UG) IN THE SKIN
     Route: 065

REACTIONS (8)
  - Product availability issue [Unknown]
  - Spinal cord injury [Recovered/Resolved]
  - Fatigue [Recovered/Resolved]
  - Malaise [Recovered/Resolved]
  - Incorrect dose administered [Unknown]
  - Fall [Recovered/Resolved]
  - Insomnia [Recovered/Resolved]
  - Product dose omission issue [Unknown]
